FAERS Safety Report 6719174-2 (Version None)
Quarter: 2010Q2

REPORT INFORMATION
  Report Type: 
  Country: None (occurrence: None)
  Receive Date: 20100507
  Receipt Date: 20100503
  Transmission Date: 20101027
  Serious: Yes (Other)
  Sender: FDA-Public Use
  Company Number: 2010SP025059

PATIENT
  Age: 24 Year
  Sex: Female

DRUGS (1)
  1. CLARITIN [Suspect]
     Indication: MULTIPLE ALLERGIES
     Dosage: 10 MG; ONCE; PO
     Route: 048
     Dates: start: 20100502

REACTIONS (5)
  - ASTHENIA [None]
  - CONVULSION [None]
  - DIZZINESS [None]
  - HYPERSENSITIVITY [None]
  - URINARY INCONTINENCE [None]
